FAERS Safety Report 24418680 (Version 1)
Quarter: 2024Q4

REPORT INFORMATION
  Report Type: Spontaneous
  Country: US (occurrence: US)
  Receive Date: 20241009
  Receipt Date: 20241009
  Transmission Date: 20250114
  Serious: No
  Sender: Thea Pharma
  Company Number: US-THEA-2024000845

PATIENT
  Sex: Female

DRUGS (1)
  1. IYUZEH [Suspect]
     Active Substance: LATANOPROST
     Indication: Product used for unknown indication
     Dosage: EVERY OTHER DAY
     Route: 047

REACTIONS (1)
  - Prescribed underdose [Unknown]
